FAERS Safety Report 10388902 (Version 1)
Quarter: 2014Q1

REPORT INFORMATION
  Report Type: Spontaneous
  Country: US (occurrence: None)
  Receive Date: 20140306
  Receipt Date: 20140306
  Transmission Date: 20141002
  Serious: Yes (Hospitalization)
  Sender: FDA-Public Use
  Company Number: 163-21880-13070966

PATIENT
  Age: 64 Year
  Sex: Female
  Weight: 81.65 kg

DRUGS (10)
  1. REVLIMID (LENALIDOMIDE) (25 MILLIGRAM, CAPSULES) [Suspect]
     Indication: PLASMA CELL MYELOMA
     Route: 048
     Dates: start: 201201
  2. AVELOX (MOXIFLOXACIN HYDROHCLORIDE) [Concomitant]
  3. VITAMIN B12 (CYANOCOBALAMIN) [Concomitant]
  4. VYTORIN (INEGY) [Concomitant]
  5. ZOMETA (ZOLEDRONIC ACID) [Concomitant]
  6. ACYCLOVIR (ACICLOVIR) (ACICLOVIR) [Concomitant]
  7. PRILOSEC (OMEPRAZOLE) [Concomitant]
  8. ASPIRIN (ACETYLSALICYLIC ACID) [Concomitant]
  9. PLAVIX (CLOPIDOGREL SULFATE) [Concomitant]
  10. CALCIUM + D (OS-CAL) [Concomitant]

REACTIONS (1)
  - Cerebrovascular accident [None]
